FAERS Safety Report 9617227 (Version 1)
Quarter: 2013Q4

REPORT INFORMATION
  Report Type: Report from Study
  Country: US (occurrence: US)
  Receive Date: 20131011
  Receipt Date: 20131011
  Transmission Date: 20140711
  Serious: Yes (Hospitalization, Other)
  Sender: FDA-Public Use
  Company Number: US-PFIZER INC-2013291241

PATIENT
  Age: 50 Year
  Sex: Male

DRUGS (3)
  1. PHENYTOIN [Suspect]
     Indication: EPILEPSY
     Dosage: 750 MG
     Route: 042
  2. PHENYTOIN [Suspect]
     Dosage: 300 MG
     Route: 048
  3. PHENYTOIN [Suspect]
     Dosage: 500 MG
     Route: 042

REACTIONS (7)
  - Toxicity to various agents [Recovered/Resolved]
  - Anticonvulsant drug level above therapeutic [Recovered/Resolved]
  - Confusional state [Recovered/Resolved]
  - Balance disorder [Recovered/Resolved]
  - Agitation [Recovered/Resolved]
  - Nystagmus [Recovered/Resolved]
  - Convulsion [Recovered/Resolved]
